FAERS Safety Report 12173177 (Version 2)
Quarter: 2016Q2

REPORT INFORMATION
  Report Type: Report from Study
  Country: US (occurrence: US)
  Receive Date: 20160311
  Receipt Date: 20160506
  Transmission Date: 20160815
  Serious: Yes (Other)
  Sender: FDA-Public Use
  Company Number: US-PFIZER INC-2016146718

PATIENT
  Age: 65 Year
  Sex: Female
  Weight: 63 kg

DRUGS (8)
  1. GEODON [Suspect]
     Active Substance: ZIPRASIDONE HYDROCHLORIDE\ZIPRASIDONE MESYLATE
     Indication: SCHIZOPHRENIA
     Dosage: 80 MG, ONCE DAILY
     Route: 048
  2. BASILIXIMAB [Suspect]
     Active Substance: BASILIXIMAB
     Indication: RENAL TRANSPLANT
     Dosage: 20 MG X2
     Route: 042
     Dates: start: 20131003, end: 20131007
  3. MYCOPHENOLATE MOFETIL. [Suspect]
     Active Substance: MYCOPHENOLATE MOFETIL
     Indication: RENAL TRANSPLANT
     Dosage: 1000 MG, TWICE DAILY
     Route: 048
  4. MYCOPHENOLATE MOFETIL. [Suspect]
     Active Substance: MYCOPHENOLATE MOFETIL
     Dosage: 250 MG, TWICE DAILY
     Route: 048
     Dates: start: 20150825, end: 20151120
  5. ASKP1240 [Suspect]
     Active Substance: BLESELUMAB
     Indication: RENAL TRANSPLANT
     Dosage: 200 MG, UNK,  FOR 9 MONTHS
     Route: 042
     Dates: start: 20131003, end: 20160209
  6. MYCOPHENOLATE MOFETIL. [Suspect]
     Active Substance: MYCOPHENOLATE MOFETIL
     Dosage: 750 MG, TWICE DAILY
     Route: 048
     Dates: start: 20140708
  7. MYCOPHENOLATE MOFETIL. [Suspect]
     Active Substance: MYCOPHENOLATE MOFETIL
     Dosage: 500 MG, TWICE DAILY
     Route: 048
     Dates: start: 20140923
  8. GEODON [Suspect]
     Active Substance: ZIPRASIDONE HYDROCHLORIDE\ZIPRASIDONE MESYLATE
     Dosage: 40 MG, ONCE DAILY
     Route: 048
     Dates: start: 20151214

REACTIONS (1)
  - Agranulocytosis [Not Recovered/Not Resolved]

NARRATIVE: CASE EVENT DATE: 20160105
